FAERS Safety Report 24263635 (Version 4)
Quarter: 2025Q2

REPORT INFORMATION
  Report Type: Spontaneous
  Country: US (occurrence: US)
  Receive Date: 20240829
  Receipt Date: 20250625
  Transmission Date: 20250716
  Serious: No
  Sender: PFIZER
  Company Number: US-PFIZER INC-PV202400112002

PATIENT
  Age: 54 Year
  Sex: Male

DRUGS (1)
  1. PAXLOVID [Suspect]
     Active Substance: NIRMATRELVIR\RITONAVIR
     Indication: COVID-19 treatment

REACTIONS (1)
  - Circumstance or information capable of leading to medication error [Unknown]
